FAERS Safety Report 23509431 (Version 1)
Quarter: 2024Q1

REPORT INFORMATION
  Report Type: Report from Study
  Country: US (occurrence: US)
  Receive Date: 20240210
  Receipt Date: 20240210
  Transmission Date: 20240410
  Serious: Yes (Other)
  Sender: FDA-Public Use
  Company Number: US-ABBVIE-5626352

PATIENT
  Sex: Male

DRUGS (1)
  1. HUMIRA [Suspect]
     Active Substance: ADALIMUMAB
     Indication: Product used for unknown indication
     Dosage: STRENGTH:40MG
     Route: 058
     Dates: end: 202401

REACTIONS (2)
  - Chemotherapy [Not Recovered/Not Resolved]
  - Pain in extremity [Not Recovered/Not Resolved]
